FAERS Safety Report 5894809-5 (Version None)
Quarter: 2008Q3

REPORT INFORMATION
  Report Type: 
  Country: None (occurrence: None)
  Receive Date: 20080828
  Receipt Date: 20080627
  Transmission Date: 20090109
  Serious: Yes (Hospitalization)
  Sender: FDA-Public Use
  Company Number: 2008BH006870

PATIENT
  Age: 8 Year
  Sex: Male
  Weight: 16 kg

DRUGS (12)
  1. SEVOFLURANE [Suspect]
     Indication: ANAESTHESIA
     Dosage: ONCE;INH
     Route: 055
     Dates: start: 20080618, end: 20080618
  2. NITROUS OXIDE [Concomitant]
  3. FENTANYL [Concomitant]
  4. LIDOCAINE [Concomitant]
  5. ATROPINE [Concomitant]
  6. ZOFRAN [Concomitant]
  7. LACTATED RINGER'S [Concomitant]
  8. MIRILAX [Concomitant]
  9. NEOCATE JR [Concomitant]
  10. BACTROBAN [Concomitant]
  11. BACTRIM [Concomitant]
  12. ALBUTEROL [Concomitant]

REACTIONS (2)
  - HEPATITIS [None]
  - OEDEMA PERIPHERAL [None]
